FAERS Safety Report 5084725-3 (Version None)
Quarter: 2006Q3

REPORT INFORMATION
  Report Type: 
  Country: None (occurrence: None)
  Receive Date: 20060815
  Receipt Date: 20060803
  Transmission Date: 20061208
  Serious: Yes (Other)
  Sender: FDA-Public Use
  Company Number: GXKR2006JP04489

PATIENT
  Age: 33 Year
  Sex: Male

DRUGS (5)
  1. ETOPOSIDE [Suspect]
     Indication: TESTIS CANCER
     Dosage: 1500 MG/M2
     Dates: start: 20040801
  2. CARBOPLATIN [Suspect]
     Indication: TESTIS CANCER
     Dosage: 1250 MG/M2
     Dates: start: 20040801
  3. TAXOL [Suspect]
     Indication: TESTIS CANCER
     Dosage: 175 MG/M2
     Dates: start: 20040801
  4. IFOSFAMIDE [Suspect]
     Indication: TESTIS CANCER
     Dosage: 7.5 MG/M2
     Dates: start: 20040801
  5. G-CSF (GRANULOCYTE COLONY STIMULATING FACTOR) [Suspect]
     Indication: TESTIS CANCER
     Dosage: 300 UG
     Dates: start: 20040801

REACTIONS (8)
  - ACUTE FEBRILE NEUTROPHILIC DERMATOSIS [None]
  - BODY TEMPERATURE INCREASED [None]
  - CHEST PAIN [None]
  - DYSPONESIS [None]
  - INJECTION SITE PHLEBITIS [None]
  - SEPTIC EMBOLUS [None]
  - STAPHYLOCOCCAL SEPSIS [None]
  - WHITE BLOOD CELL COUNT ABNORMAL [None]
